FAERS Safety Report 5661810-6 (Version None)
Quarter: 2008Q1

REPORT INFORMATION
  Report Type: 
  Country: None (occurrence: None)
  Receive Date: 20080229
  Receipt Date: 20080221
  Transmission Date: 20080703
  Serious: Yes (Other)
  Sender: FDA-Public Use
  Company Number: CHPA2008US03390

PATIENT
  Age: 27 Year
  Sex: Male
  Weight: 59 kg

DRUGS (2)
  1. BUCKLEY'S MIXTURE (USA) (NCH) (DEXTROMETHORPHAN HYDROBROMIDE) SYRUP [Suspect]
     Indication: COUGH
     Dosage: 1 TSP, BID, ORAL
     Route: 048
     Dates: start: 20080221
  2. DEPHENHYDRAMINE (DIPHENHYDRAMINE) [Suspect]
     Indication: RHINORRHOEA
     Dosage: 25MG, ONCE/SINGLE, ORAL
     Route: 048
     Dates: start: 20080221

REACTIONS (3)
  - COLD SWEAT [None]
  - DIARRHOEA [None]
  - LOSS OF CONSCIOUSNESS [None]
